FAERS Safety Report 8187697-8 (Version None)
Quarter: 2012Q1

REPORT INFORMATION
  Report Type: 
  Country: None (occurrence: None)
  Receive Date: 20120306
  Receipt Date: 20111114
  Transmission Date: 20120608
  Serious: No
  Sender: FDA-Public Use
  Company Number: US-GLAXOSMITHKLINE-A0953831A

PATIENT
  Sex: Female

DRUGS (1)
  1. LAMICTAL [Suspect]
     Indication: PREMENSTRUAL SYNDROME
     Dosage: 25MG UNKNOWN
     Route: 065

REACTIONS (4)
  - MOOD SWINGS [None]
  - THERAPEUTIC RESPONSE UNEXPECTED [None]
  - DRUG ADMINISTRATION ERROR [None]
  - DEPRESSION [None]
